FAERS Safety Report 7365952-9 (Version None)
Quarter: 2011Q1

REPORT INFORMATION
  Report Type: 
  Country: None (occurrence: None)
  Receive Date: 20110322
  Receipt Date: 20110309
  Transmission Date: 20110831
  Serious: Yes (Hospitalization)
  Sender: FDA-Public Use
  Company Number: US-ACTELION-A-US2011-46407

PATIENT

DRUGS (3)
  1. TRACLEER [Suspect]
     Indication: PULMONARY ARTERIAL HYPERTENSION
     Dosage: 125 MG, UNK
     Route: 048
     Dates: start: 20101022, end: 20110306
  2. PLAVIX [Concomitant]
  3. COUMADIN [Concomitant]

REACTIONS (5)
  - MUSCLE SPASMS [None]
  - DYSPNOEA [None]
  - HAEMORRHAGE [None]
  - TRANSFUSION [None]
  - DYSPEPSIA [None]
